FAERS Safety Report 4409814-5 (Version None)
Quarter: 2004Q3

REPORT INFORMATION
  Report Type: 
  Country: None (occurrence: None)
  Receive Date: 20040727
  Receipt Date: 20040331
  Transmission Date: 20050211
  Serious: Yes (Disabling)
  Sender: FDA-Public Use
  Company Number: 7774

PATIENT
  Age: 60 Year
  Sex: Female

DRUGS (2)
  1. CYTARABINE [Suspect]
     Indication: ACUTE MYELOID LEUKAEMIA
     Dosage: IV
     Route: 042
     Dates: start: 20031101, end: 20040301
  2. IDARUBICIN HCL [Suspect]
     Indication: ACUTE MYELOID LEUKAEMIA
     Dosage: IV
     Route: 042
     Dates: start: 20031101, end: 20040301

REACTIONS (3)
  - DEAFNESS NEUROSENSORY [None]
  - MYELOPATHY [None]
  - OPTIC NEUROPATHY [None]
